FAERS Safety Report 10363397 (Version 1)
Quarter: 2014Q3

REPORT INFORMATION
  Report Type: Spontaneous
  Country: US (occurrence: US)
  Receive Date: 20140805
  Receipt Date: 20140805
  Transmission Date: 20150326
  Serious: Yes (Hospitalization, Other)
  Sender: FDA-Public Use
  Company Number: US-PFIZER INC-2014214483

PATIENT
  Sex: Male

DRUGS (2)
  1. DILANTIN-125 [Suspect]
     Active Substance: PHENYTOIN
     Dosage: 200 MG, 2X/DAY
     Dates: start: 201407
  2. DILANTIN-125 [Suspect]
     Active Substance: PHENYTOIN
     Dosage: 300 MG, DAILY
     Route: 048

REACTIONS (8)
  - Dizziness [Unknown]
  - Diverticulitis [Recovered/Resolved]
  - Confusional state [Unknown]
  - Coordination abnormal [Unknown]
  - Gait disturbance [Unknown]
  - Tremor [Unknown]
  - Rectal haemorrhage [Recovered/Resolved]
  - Fall [Unknown]

NARRATIVE: CASE EVENT DATE: 201407
